FAERS Safety Report 9377456 (Version 4)
Quarter: 2013Q4

REPORT INFORMATION
  Report Type: Spontaneous
  Country: US (occurrence: US)
  Receive Date: 20130701
  Receipt Date: 20131007
  Transmission Date: 20140711
  Serious: Yes (Disabling, Other)
  Sender: FDA-Public Use
  Company Number: US-JNJFOC-20130612994

PATIENT
  Sex: Female
  Weight: 65.77 kg

DRUGS (4)
  1. INVEGA SUSTENNA [Suspect]
     Indication: NEURALGIA
     Route: 030
     Dates: end: 201205
  2. INVEGA SUSTENNA [Suspect]
     Indication: ANXIETY
     Route: 030
     Dates: end: 201205
  3. INVEGA SUSTENNA [Suspect]
     Indication: AFFECTIVE DISORDER
     Route: 030
     Dates: end: 201205
  4. BRENDA-35 ED [Suspect]
     Indication: INFLUENZA IMMUNISATION
     Route: 065
     Dates: start: 20071118, end: 20120519

REACTIONS (11)
  - Cerebrovascular accident [Recovered/Resolved]
  - Nephropathy [Recovering/Resolving]
  - Stress urinary incontinence [Recovering/Resolving]
  - Vision blurred [Recovering/Resolving]
  - Contusion [Recovered/Resolved]
  - Syringe issue [Unknown]
  - Blood cholesterol increased [Recovered/Resolved]
  - Incorrect dose administered [Unknown]
  - Off label use [Unknown]
  - Stress [Recovering/Resolving]
  - Syringe issue [Unknown]
